FAERS Safety Report 9650679 (Version 1)
Quarter: 2013Q4

REPORT INFORMATION
  Report Type: Spontaneous
  Country: AU (occurrence: AU)
  Receive Date: 20131029
  Receipt Date: 20131029
  Transmission Date: 20140711
  Serious: Yes (Other)
  Sender: FDA-Public Use
  Company Number: AU-ROCHE-1295253

PATIENT
  Age: 30 Year
  Sex: Female

DRUGS (7)
  1. MYCOPHENOLATE MOFETIL [Suspect]
     Indication: PRODUCT USED FOR UNKNOWN INDICATION
     Route: 065
  2. CYCLOPHOSPHAMIDE [Suspect]
     Indication: PRODUCT USED FOR UNKNOWN INDICATION
     Route: 048
  3. CYCLOSPORIN [Suspect]
     Indication: PRODUCT USED FOR UNKNOWN INDICATION
     Route: 065
  4. PREDNISOLONE [Suspect]
     Indication: PRODUCT USED FOR UNKNOWN INDICATION
     Route: 065
  5. METHYLPREDNISOLONE [Concomitant]
  6. PREDNISOLONE [Concomitant]
     Route: 048
  7. RITUXIMAB [Concomitant]
     Route: 065

REACTIONS (5)
  - Disease recurrence [Unknown]
  - Cytomegalovirus colitis [Unknown]
  - Transplant rejection [Unknown]
  - Glomerulonephritis membranoproliferative [Unknown]
  - Cystitis [Unknown]
